FAERS Safety Report 8932704 (Version 1)
Quarter: 2012Q4

REPORT INFORMATION
  Report Type: 
  Country: CA (occurrence: CA)
  Receive Date: 20121128
  Receipt Date: 20121128
  Transmission Date: 20130627
  Serious: Yes (Hospitalization)
  Sender: FDA-Public Use
  Company Number: CA-B.I. PHARMACEUTICALS,INC./RIDGEFIELD-2012-CN-02327CN

PATIENT
  Age: 80 Year
  Sex: Female

DRUGS (4)
  1. PRADAX [Suspect]
     Indication: ATRIAL FIBRILLATION
     Dosage: 220 mg
     Route: 048
     Dates: start: 201205, end: 20121113
  2. ASPIRIN [Concomitant]
  3. FERROUS SULFATE [Concomitant]
     Dosage: 300 mg
  4. MEDICATION NOT FURTHER SPECIFIED [Concomitant]

REACTIONS (3)
  - Haemarthrosis [Not Recovered/Not Resolved]
  - Arthritis infective [Not Recovered/Not Resolved]
  - Anaemia [Not Recovered/Not Resolved]
